FAERS Safety Report 6016637-2 (Version None)
Quarter: 2008Q4

REPORT INFORMATION
  Report Type: 
  Country: None (occurrence: None)
  Receive Date: 20081222
  Receipt Date: 20081215
  Transmission Date: 20090506
  Serious: Yes (Other)
  Sender: FDA-Public Use
  Company Number: PHHY2008DE30066

PATIENT
  Sex: Male
  Weight: 85 kg

DRUGS (1)
  1. RASILEZ [Suspect]
     Indication: HYPERTENSION
     Dosage: 150 MG/DAY
     Route: 048
     Dates: start: 20080922, end: 20081003

REACTIONS (4)
  - ABDOMINAL PAIN [None]
  - ANGINA PECTORIS [None]
  - BACK PAIN [None]
  - SCIATICA [None]
